FAERS Safety Report 10474754 (Version 3)
Quarter: 2014Q4

REPORT INFORMATION
  Report Type: Spontaneous
  Country: US (occurrence: US)
  Receive Date: 20140925
  Receipt Date: 20141214
  Transmission Date: 20150528
  Serious: Yes (Other)
  Sender: FDA-Public Use
  Company Number: US-AMGEN-USASP2014066626

PATIENT
  Age: 35 Year
  Sex: Female
  Weight: 53.06 kg

DRUGS (1)
  1. ENBREL [Suspect]
     Active Substance: ETANERCEPT
     Indication: ANKYLOSING SPONDYLITIS
     Dosage: 50 MG, QWK
     Route: 065
     Dates: start: 201111

REACTIONS (2)
  - Beta haemolytic streptococcal infection [Unknown]
  - Premature rupture of membranes [Unknown]
